FAERS Safety Report 19799471 (Version 1)
Quarter: 2021Q3

REPORT INFORMATION
  Report Type: Spontaneous
  Country: IT (occurrence: IT)
  Receive Date: 20210907
  Receipt Date: 20210907
  Transmission Date: 20211014
  Serious: Yes (Other)
  Sender: FDA-Public Use
  Company Number: IT-TAKEDA-2021TUS053986

PATIENT
  Age: 61 Year
  Sex: Male

DRUGS (1)
  1. HUMAN NORMAL IMMUNOGLOBULIN [Suspect]
     Active Substance: HUMAN IMMUNOGLOBULIN G
     Indication: ACUTE MOTOR-SENSORY AXONAL NEUROPATHY
     Dosage: 0.4 GRAM PER KILOGRAM, QD
     Route: 042

REACTIONS (1)
  - Drug ineffective for unapproved indication [Unknown]
